FAERS Safety Report 8619465-4 (Version None)
Quarter: 2012Q3

REPORT INFORMATION
  Report Type: 
  Country: None (occurrence: None)
  Receive Date: 20120824
  Receipt Date: 20120816
  Transmission Date: 20120928
  Serious: Yes (Hospitalization, Disabling)
  Sender: FDA-Public Use
  Company Number: US-JNJFOC-20120808483

PATIENT
  Age: 89 Year
  Sex: Female
  Weight: 68.5 kg

DRUGS (8)
  1. LOSARTAN POTASSIUM [Concomitant]
  2. XARELTO [Suspect]
     Indication: CEREBROVASCULAR ACCIDENT PROPHYLAXIS
     Route: 048
     Dates: start: 20120425, end: 20120428
  3. XARELTO [Suspect]
     Indication: ATRIAL FIBRILLATION
     Route: 048
     Dates: start: 20120425, end: 20120428
  4. ZOCOR [Concomitant]
  5. DILTIAZEM [Concomitant]
  6. METOPROLOL TARTRATE [Concomitant]
  7. CEFTRIAXONE [Concomitant]
  8. ASPIRIN [Concomitant]

REACTIONS (2)
  - CEREBRAL HAEMORRHAGE [None]
  - SUBARACHNOID HAEMORRHAGE [None]
